FAERS Safety Report 19430162 (Version 1)
Quarter: 2021Q2

REPORT INFORMATION
  Report Type: Spontaneous
  Country: KR (occurrence: KR)
  Receive Date: 20210618
  Receipt Date: 20210618
  Transmission Date: 20210717
  Serious: Yes (Life-Threatening, Hospitalization, Other)
  Sender: FDA-Public Use
  Company Number: KR-LUPIN PHARMACEUTICALS INC.-2021-09439

PATIENT
  Age: 40 Year
  Sex: Male
  Weight: 51 kg

DRUGS (1)
  1. SILDENAFIL. [Suspect]
     Active Substance: SILDENAFIL
     Indication: PRODUCT USED FOR UNKNOWN INDICATION
     Dosage: 100 MILLIGRAM IN TOTAL (KAMAGRA)
     Route: 065

REACTIONS (3)
  - Substance use [Unknown]
  - Acute myocardial infarction [Recovered/Resolved]
  - Left ventricular dysfunction [Recovered/Resolved]
